FAERS Safety Report 6580053-5 (Version None)
Quarter: 2010Q1

REPORT INFORMATION
  Report Type: 
  Country: None (occurrence: None)
  Receive Date: 20100212
  Receipt Date: 20100201
  Transmission Date: 20100710
  Serious: Yes (Hospitalization)
  Sender: FDA-Public Use
  Company Number: US-WATSON-2010-01312

PATIENT
  Age: 59 Year
  Sex: Male

DRUGS (1)
  1. PROPRANOLOL [Suspect]
     Indication: HYPERTENSION
     Dosage: UNK

REACTIONS (2)
  - SCLEROSING ENCAPSULATING PERITONITIS [None]
  - SMALL INTESTINAL OBSTRUCTION [None]
